FAERS Safety Report 5341064-0 (Version None)
Quarter: 2007Q2

REPORT INFORMATION
  Report Type: 
  Country: None (occurrence: None)
  Receive Date: 20070405
  Receipt Date: 20061109
  Transmission Date: 20071010
  Serious: No
  Sender: FDA-Public Use
  Company Number: US200608005468

PATIENT
  Age: 54 Year
  Sex: Female
  Weight: 77.1 kg

DRUGS (12)
  1. CYMBALTA [Suspect]
     Indication: BONE PAIN
     Dosage: 30 MG, DAILY (1/D), ORAL
     Route: 048
     Dates: start: 20051028, end: 20051102
  2. SDS                (ACETYLSALICYLIC ACID) [Concomitant]
  3. WELLBUTRIN [Concomitant]
  4. PLAVIX [Concomitant]
  5. SYNTHROID [Concomitant]
  6. COZAAR [Concomitant]
  7. PROTONIX [Concomitant]
  8. METFORMIN HCL [Concomitant]
  9. ZOLOFT [Concomitant]
  10. XANAX [Concomitant]
  11. EXCEDRIN PM             (DIPHENHYDRAMINE CITRATE, PARACETAMOL) [Concomitant]
  12. VICODIN [Concomitant]

REACTIONS (9)
  - ASTHENIA [None]
  - BALANCE DISORDER [None]
  - DYSARTHRIA [None]
  - FALL [None]
  - GAIT DISTURBANCE [None]
  - HEAD INJURY [None]
  - HYPERSOMNIA [None]
  - MALAISE [None]
  - SOMNOLENCE [None]
